FAERS Safety Report 21979732 (Version 1)
Quarter: 2023Q1

REPORT INFORMATION
  Report Type: Spontaneous
  Country: DE (occurrence: DE)
  Receive Date: 20230210
  Receipt Date: 20230210
  Transmission Date: 20230418
  Serious: Yes (Other)
  Sender: FDA-Public Use
  Company Number: DE-GW PHARMA-2023-DE-002639

PATIENT
  Weight: 75 kg

DRUGS (7)
  1. CANNABIDIOL [Suspect]
     Active Substance: CANNABIDIOL
     Indication: Lennox-Gastaut syndrome
     Dosage: 2 X 700 MG/DIE IN TWO DOSES OF 350MG EACH
  2. CANNABIDIOL [Suspect]
     Active Substance: CANNABIDIOL
     Dosage: 2X5.5ML/DIE
  3. PERAMPANEL [Concomitant]
     Active Substance: PERAMPANEL
     Indication: Product used for unknown indication
     Dosage: 1X 10MG/DIE
  4. PERAMPANEL [Concomitant]
     Active Substance: PERAMPANEL
     Dosage: 8MG/DIE
  5. CLOBAZAM [Concomitant]
     Active Substance: CLOBAZAM
     Indication: Product used for unknown indication
     Dosage: 2X20MG/DIE
  6. CLOBAZAM [Concomitant]
     Active Substance: CLOBAZAM
     Dosage: 2X5MG/DIE
  7. LACOSAMIDE [Concomitant]
     Active Substance: LACOSAMIDE
     Indication: Product used for unknown indication
     Dosage: 2X200MG/DIE

REACTIONS (5)
  - Hepatic encephalopathy [Unknown]
  - Seizure [Unknown]
  - Somnolence [Unknown]
  - General physical health deterioration [Unknown]
  - Hepatic enzyme increased [Unknown]
